FAERS Safety Report 8600353-4 (Version None)
Quarter: 2012Q3

REPORT INFORMATION
  Report Type: 
  Country: None (occurrence: None)
  Receive Date: 20120817
  Receipt Date: 20120813
  Transmission Date: 20120928
  Serious: No
  Sender: FDA-Public Use
  Company Number: US-PFIZER INC-2012173300

PATIENT
  Age: 32 Year
  Sex: Female

DRUGS (2)
  1. RELPAX [Suspect]
     Indication: HEADACHE
     Dosage: 40 MG, AS NEEDED (1 AT ONSET OF H/A)
     Route: 048
     Dates: start: 20120501
  2. RELPAX [Suspect]
     Indication: MIGRAINE

REACTIONS (3)
  - ONYCHOPHAGIA [None]
  - AGITATION [None]
  - ANXIETY [None]
